FAERS Safety Report 17354193 (Version 1)
Quarter: 2020Q1

REPORT INFORMATION
  Report Type: Spontaneous
  Country: US (occurrence: US)
  Receive Date: 20200131
  Receipt Date: 20200131
  Transmission Date: 20200409
  Serious: No
  Sender: FDA-Public Use
  Company Number: US-ALKERMES INC.-ALK-2020-000363

PATIENT
  Age: 33 Year
  Sex: Male
  Weight: 86.17 kg

DRUGS (3)
  1. PROPRANOLOL [Concomitant]
     Active Substance: PROPRANOLOL HYDROCHLORIDE
     Indication: PRODUCT USED FOR UNKNOWN INDICATION
     Dosage: UNK
  2. TRAZODONE [Concomitant]
     Active Substance: TRAZODONE HYDROCHLORIDE
     Indication: PRODUCT USED FOR UNKNOWN INDICATION
     Dosage: UNK
  3. VIVITROL [Suspect]
     Active Substance: NALTREXONE
     Indication: ALCOHOLISM
     Dosage: 380 MG, QMO
     Route: 030
     Dates: start: 201907

REACTIONS (7)
  - Tremor [Recovered/Resolved]
  - Therapeutic response shortened [Unknown]
  - Anxiety [Not Recovered/Not Resolved]
  - Product dose omission [Recovered/Resolved]
  - Alcoholism [Unknown]
  - Emotional distress [Unknown]
  - Imprisonment [Unknown]

NARRATIVE: CASE EVENT DATE: 2019
